FAERS Safety Report 5301322-2 (Version None)
Quarter: 2007Q2

REPORT INFORMATION
  Report Type: 
  Country: None (occurrence: None)
  Receive Date: 20070418
  Receipt Date: 20070409
  Transmission Date: 20071010
  Serious: Yes (Other)
  Sender: FDA-Public Use
  Company Number: GB-PFIZER INC-2007028872

PATIENT
  Age: 31 Year
  Sex: Female

DRUGS (1)
  1. OXYTETRACYCLINE [Suspect]
     Indication: ROSACEA

REACTIONS (1)
  - ONYCHOLYSIS [None]
